FAERS Safety Report 4360096-2 (Version None)
Quarter: 2004Q2

REPORT INFORMATION
  Report Type: 
  Country: None (occurrence: None)
  Receive Date: 20040514
  Receipt Date: 20040429
  Transmission Date: 20050107
  Serious: Yes (Other)
  Sender: FDA-Public Use
  Company Number: PHNU2004DE00612

PATIENT
  Age: 79 Year
  Sex: Female
  Weight: 74.027 kg

DRUGS (2)
  1. VISUDYNE [Suspect]
     Indication: MACULAR DEGENERATION
     Dosage: 5.4 ML ONCE IV
     Route: 042
     Dates: start: 20030602, end: 20030602
  2. FALITHROM [Suspect]
     Indication: ARRHYTHMIA

REACTIONS (4)
  - DRUG INTERACTION [None]
  - RETINAL HAEMORRHAGE [None]
  - VISUAL ACUITY REDUCED [None]
  - VISUAL DISTURBANCE [None]
